FAERS Safety Report 7679860 (Version 2)
Quarter: 2013Q4

REPORT INFORMATION
  Report Type: Spontaneous
  Country: US (occurrence: US)
  Receive Date: 20101123
  Receipt Date: 20131227
  Transmission Date: 20140711
  Serious: Yes (Other)
  Sender: FDA-Public Use
  Company Number: US-JNJFOC-20101105075

PATIENT
  Age: 54 Year
  Sex: Female

DRUGS (5)
  1. LEVAQUIN [Suspect]
     Indication: SINUSITIS
     Route: 065
     Dates: start: 20100401
  2. LEVAQUIN [Suspect]
     Indication: SINUSITIS
     Route: 065
  3. AZITHROMYCIN [Suspect]
     Indication: SINUSITIS
     Route: 065
  4. BETASERON (INTERFERON BETA-IB) [Suspect]
     Indication: MULTIPLE SCLEROSIS
     Dosage: 250 MCG, POWDER AND SOLVENT FOR SOLUTION FOR INJECTION
     Route: 058
     Dates: start: 20131108
  5. BETASERON (INTERFERON BETA-IB) [Suspect]
     Indication: MULTIPLE SCLEROSIS
     Dosage: 250 MCG, POWDER AND SOLVENT FOR SOLUTION FOR INJECTION
     Route: 058
     Dates: start: 20091105, end: 20130915

REACTIONS (17)
  - Meniscus injury [Recovered/Resolved]
  - Multiple sclerosis [Recovered/Resolved]
  - Tendonitis [Recovering/Resolving]
  - Tendonitis [Recovering/Resolving]
  - Tendonitis [Recovered/Resolved]
  - Balance disorder [Recovered/Resolved]
  - Visual acuity reduced [Recovering/Resolving]
  - Temperature intolerance [Recovering/Resolving]
  - Drug hypersensitivity [Recovered/Resolved]
  - Hypoaesthesia [Recovered/Resolved]
  - Joint swelling [Recovered/Resolved]
  - Joint swelling [Recovered/Resolved]
  - Local swelling [Recovered/Resolved]
  - Neck pain [Recovered/Resolved]
  - Joint swelling [Recovered/Resolved]
  - Melanocytic naevus [Not Recovered/Not Resolved]
  - Dry skin [Unknown]
